FAERS Safety Report 4847368-X (Version None)
Quarter: 2005Q4

REPORT INFORMATION
  Report Type: 
  Country: None (occurrence: None)
  Receive Date: 20051207
  Receipt Date: 20010920
  Transmission Date: 20060501
  Serious: Yes (Hospitalization)
  Sender: FDA-Public Use
  Company Number: BR-ROCHE-268821

PATIENT
  Age: 39 Year
  Sex: Male
  Weight: 80.1 kg

DRUGS (10)
  1. RIBAVIRIN [Suspect]
     Dosage: WITH FOOD.
     Route: 048
     Dates: start: 20010801, end: 20010919
  2. RIBAVIRIN [Suspect]
     Dosage: WITH FOOD.
     Route: 048
     Dates: start: 20010920, end: 20020703
  3. PEG-INTERFERON ALFA 2A (RO 25-8310) [Suspect]
     Route: 058
     Dates: start: 20010801, end: 20010919
  4. PEG-INTERFERON ALFA 2A (RO 25-8310) [Suspect]
     Route: 058
     Dates: start: 20010920, end: 20020627
  5. AZT [Concomitant]
     Dates: start: 19941015
  6. 3TC [Concomitant]
  7. RITONAVIR [Concomitant]
     Dates: start: 19970515
  8. SAQUINAVIR [Concomitant]
     Dates: start: 19970615
  9. CLINDAMYCIN HCL [Concomitant]
     Dates: start: 20010815
  10. PYRIMETHAMINE TAB [Concomitant]
     Dates: start: 19951015

REACTIONS (3)
  - LEUKOPENIA [None]
  - NEPHROLITHIASIS [None]
  - PLATELET COUNT DECREASED [None]
